FAERS Safety Report 4657228-5 (Version None)
Quarter: 2005Q2

REPORT INFORMATION
  Report Type: 
  Country: None (occurrence: None)
  Receive Date: 20050408
  Receipt Date: 20050204
  Transmission Date: 20051028
  Serious: No
  Sender: FDA-Public Use
  Company Number: 230443K05USA

PATIENT
  Age: 19 Year
  Sex: Female

DRUGS (1)
  1. REBIF [Suspect]
     Indication: MULTIPLE SCLEROSIS
     Dosage: 44 MCG, 3 IN 1 WEEKS, SUBCUTANEOUS
     Route: 058
     Dates: start: 20040913

REACTIONS (5)
  - BLADDER DISORDER [None]
  - CONDITION AGGRAVATED [None]
  - MOBILITY DECREASED [None]
  - MUSCLE SPASTICITY [None]
  - PAIN [None]
